FAERS Safety Report 4546799-5 (Version None)
Quarter: 2005Q1

REPORT INFORMATION
  Report Type: 
  Country: None (occurrence: None)
  Receive Date: 20050105
  Receipt Date: 20041223
  Transmission Date: 20050727
  Serious: Yes (Other)
  Sender: FDA-Public Use
  Company Number: 200410549BCA

PATIENT
  Age: 83 Year
  Sex: Female

DRUGS (8)
  1. CIPROFLOXACIN [Suspect]
     Indication: LEG AMPUTATION
     Dosage: 1000 MG, QD, ORAL
     Route: 048
     Dates: start: 19970517, end: 19970530
  2. CIPROFLOXACIN [Suspect]
     Indication: POSTOPERATIVE INFECTION
     Dosage: 1000 MG, QD, ORAL
     Route: 048
     Dates: start: 19970517, end: 19970530
  3. HEPARIN [Suspect]
     Indication: LEG AMPUTATION
     Dosage: 5000 U, BID, SUBCUTANEOUS
     Route: 058
     Dates: start: 19970418, end: 19970530
  4. HEPARIN [Suspect]
     Indication: POSTOPERATIVE INFECTION
     Dosage: 5000 U, BID, SUBCUTANEOUS
     Route: 058
     Dates: start: 19970418, end: 19970530
  5. CHLORTHALIDONE [Concomitant]
  6. HYDROCHLOROTHIAZIDE [Concomitant]
  7. LASIX [Concomitant]
  8. RENDELL [Concomitant]

REACTIONS (10)
  - BLOOD CREATININE INCREASED [None]
  - COAGULOPATHY [None]
  - CONTUSION [None]
  - ERYTHEMA [None]
  - ESCHERICHIA INFECTION [None]
  - HAEMOLYTIC URAEMIC SYNDROME [None]
  - HEPARIN-INDUCED THROMBOCYTOPENIA [None]
  - OEDEMA PERIPHERAL [None]
  - ORAL MUCOSAL PETECHIAE [None]
  - THROMBOCYTOPENIC PURPURA [None]
